FAERS Safety Report 6877481-7 (Version None)
Quarter: 2010Q3

REPORT INFORMATION
  Report Type: 
  Country: None (occurrence: None)
  Receive Date: 20100727
  Receipt Date: 20091019
  Transmission Date: 20110219
  Serious: No
  Sender: FDA-Public Use
  Company Number: US-ABBOTT-09P-163-0604393-00

PATIENT
  Sex: Female
  Weight: 90.8 kg

DRUGS (4)
  1. SYNTHROID [Suspect]
     Indication: AUTOIMMUNE THYROIDITIS
     Dates: start: 20090201, end: 20090401
  2. SYNTHROID [Suspect]
     Dates: start: 20090901, end: 20090901
  3. SYNTHROID [Suspect]
     Dosage: 1 IN 1 D, ONE HALF TABLET
     Dates: start: 20090901
  4. ALLEGRA [Concomitant]
     Indication: HYPERSENSITIVITY

REACTIONS (4)
  - ANXIETY [None]
  - LABORATORY TEST ABNORMAL [None]
  - NERVOUSNESS [None]
  - SINUSITIS [None]
